FAERS Safety Report 17213776 (Version 1)
Quarter: 2019Q4

REPORT INFORMATION
  Report Type: Report from Study
  Country: CA (occurrence: CA)
  Receive Date: 20191230
  Receipt Date: 20191230
  Transmission Date: 20200122
  Serious: Yes (Hospitalization, Disabling, Other)
  Sender: FDA-Public Use
  Company Number: CA-PFIZER INC-2019552617

PATIENT
  Age: 62 Year
  Sex: Male

DRUGS (11)
  1. COSENTYX [Suspect]
     Active Substance: SECUKINUMAB
     Indication: PSORIASIS
     Dosage: 300 MG, MONTHLY
     Route: 058
  2. ACITRETIN. [Concomitant]
     Active Substance: ACITRETIN
     Route: 065
  3. IRBESARTAN. [Concomitant]
     Active Substance: IRBESARTAN
     Route: 065
  4. ASPIRIN [ACETYLSALICYLIC ACID] [Concomitant]
     Active Substance: ASPIRIN
     Route: 065
  5. LIPITOR [Concomitant]
     Active Substance: ATORVASTATIN CALCIUM
     Route: 065
  6. CLOPIDOGREL BISULFATE. [Concomitant]
     Active Substance: CLOPIDOGREL BISULFATE
     Route: 065
  7. PANTOPRAZOLE SODIUM. [Concomitant]
     Active Substance: PANTOPRAZOLE SODIUM
     Route: 065
  8. COSENTYX [Suspect]
     Active Substance: SECUKINUMAB
     Indication: PSORIASIS
     Dosage: 300 MG, MONTHLY
     Route: 058
  9. PSORALEN [Concomitant]
     Active Substance: PSORALEN
     Route: 065
  10. METHOTREXATE SODIUM. [Suspect]
     Active Substance: METHOTREXATE SODIUM
     Route: 065
  11. LYRICA [Concomitant]
     Active Substance: PREGABALIN
     Route: 065

REACTIONS (14)
  - Lung neoplasm malignant [Recovered/Resolved]
  - Pneumonia [Recovered/Resolved]
  - Psoriasis [Recovered/Resolved]
  - Brain neoplasm malignant [Recovered/Resolved]
  - Heart rate irregular [Recovered/Resolved]
  - Inappropriate schedule of product administration [Recovered/Resolved]
  - Pulmonary mass [Recovered/Resolved]
  - Pulmonary oedema [Recovered/Resolved]
  - Aphasia [Recovered/Resolved]
  - Cardiac disorder [Recovered/Resolved]
  - Dyspnoea [Recovered/Resolved]
  - Movement disorder [Recovered/Resolved]
  - Cerebrovascular accident [Recovered/Resolved]
  - Chronic obstructive pulmonary disease [Recovered/Resolved]
